FAERS Safety Report 16994451 (Version 3)
Quarter: 2020Q1

REPORT INFORMATION
  Report Type: Spontaneous
  Country: PT (occurrence: PT)
  Receive Date: 20191105
  Receipt Date: 20200102
  Transmission Date: 20200409
  Serious: Yes (Hospitalization, Other)
  Sender: FDA-Public Use
  Company Number: PT-MYLANLABS-2019M1092081

PATIENT
  Age: 5 Year
  Sex: Female

DRUGS (7)
  1. IVERMECTIN. [Concomitant]
     Active Substance: IVERMECTIN
     Indication: STRONGYLOIDIASIS
     Dosage: UNK
     Route: 065
  2. MEBENDAZOLE. [Concomitant]
     Active Substance: MEBENDAZOLE
     Indication: STRONGYLOIDIASIS
     Dosage: UNK
  3. ALBENDAZOLE. [Concomitant]
     Active Substance: ALBENDAZOLE
     Indication: STRONGYLOIDIASIS
     Dosage: UNK
  4. IMATINIB. [Suspect]
     Active Substance: IMATINIB MESYLATE
     Indication: MYELOFIBROSIS
     Dosage: 100 MG, QD, APPROXIMATELY 133 MG/M2/DAY
     Route: 065
  5. CARVEDILOL. [Concomitant]
     Active Substance: CARVEDILOL
     Indication: PRODUCT USED FOR UNKNOWN INDICATION
     Dosage: UNK
  6. METHYLPREDNISOLONE. [Concomitant]
     Active Substance: METHYLPREDNISOLONE
     Indication: MYELOFIBROSIS
     Dosage: 1 MG/KG, QD
     Route: 065
  7. IMATINIB. [Suspect]
     Active Substance: IMATINIB MESYLATE
     Dosage: 54 MILLIGRAM/SQ. METER, QD (100 MG ON ALTERNATE DAYS)
     Route: 065

REACTIONS (6)
  - Intentional product misuse [Unknown]
  - Off label use [Unknown]
  - Aspartate aminotransferase increased [Unknown]
  - Hepatic enzyme increased [Recovered/Resolved]
  - Alanine aminotransferase increased [Unknown]
  - Product use in unapproved indication [Unknown]
